FAERS Safety Report 6673277-X (Version None)
Quarter: 2010Q2

REPORT INFORMATION
  Report Type: 
  Country: None (occurrence: None)
  Receive Date: 20100408
  Receipt Date: 20100219
  Transmission Date: 20101027
  Serious: Yes (Hospitalization)
  Sender: FDA-Public Use
  Company Number: DE-ROCHE-580654

PATIENT
  Sex: Female
  Weight: 64 kg

DRUGS (7)
  1. BEVACIZUMAB [Suspect]
     Dosage: MOST RECENT ADMINISTRATION ON 31 JULY 2008
     Route: 042
     Dates: start: 20080527
  2. CARBOPLATIN [Suspect]
     Dosage: MOST RECENT ADMINISTRATION ON 31 JULY 2008
     Route: 042
     Dates: start: 20080527
  3. PACLITAXEL [Suspect]
     Dosage: DOSE REPORTED 304, MOST RECENT ADMINISTRATION ON 31 JULY 2008
     Route: 042
     Dates: start: 20080527
  4. DEXAMETHASONE TAB [Concomitant]
     Route: 042
     Dates: start: 20080527, end: 20080731
  5. ONDANSETRON [Concomitant]
     Route: 042
     Dates: start: 20070527, end: 20080731
  6. DIMETINDEN [Concomitant]
     Route: 042
     Dates: start: 20080527, end: 20080731
  7. RANITIDINE HCL [Concomitant]
     Route: 042
     Dates: start: 20080527, end: 20080731

REACTIONS (1)
  - DYSPNOEA [None]
